FAERS Safety Report 15030099 (Version 1)
Quarter: 2018Q2

REPORT INFORMATION
  Report Type: Spontaneous
  Country: US (occurrence: US)
  Receive Date: 20180619
  Receipt Date: 20180619
  Transmission Date: 20180711
  Serious: Yes (Hospitalization)
  Sender: FDA-Public Use
  Company Number: US-BEH-2018091601

PATIENT
  Weight: 73.24 kg

DRUGS (30)
  1. DIPHENHYDRAMINE. [Concomitant]
     Active Substance: DIPHENHYDRAMINE
  2. LORAZEPAM. [Concomitant]
     Active Substance: LORAZEPAM
  3. IPRATROPIUM/ALBUTEROL [Concomitant]
     Active Substance: ALBUTEROL\IPRATROPIUM
  4. LASIX [Concomitant]
     Active Substance: FUROSEMIDE
  5. PREDNISONE. [Concomitant]
     Active Substance: PREDNISONE
  6. OXYGEN. [Concomitant]
     Active Substance: OXYGEN
  7. CALTRATE PLUS-D [Concomitant]
  8. NYSTATIN. [Concomitant]
     Active Substance: NYSTATIN
  9. POTASSIUM CHLORIDE. [Concomitant]
     Active Substance: POTASSIUM CHLORIDE
  10. PEPCID                             /00305201/ [Concomitant]
     Active Substance: ALUMINUM HYDROXIDE\MAGNESIUM CARBONATE
  11. TYLENOL [Concomitant]
     Active Substance: ACETAMINOPHEN
  12. SIMVASTATIN. [Concomitant]
     Active Substance: SIMVASTATIN
  13. ZEMAIRA [Suspect]
     Active Substance: .ALPHA.1-PROTEINASE INHIBITOR HUMAN
     Indication: ALPHA-1 ANTI-TRYPSIN DEFICIENCY
     Dosage: 60 MG/KG, QW
     Route: 042
     Dates: start: 20160502
  14. LIDOCAINE. [Concomitant]
     Active Substance: LIDOCAINE
  15. MIRALAX [Concomitant]
     Active Substance: POLYETHYLENE GLYCOL 3350
  16. CENTRUM SILVER                     /07431401/ [Concomitant]
  17. GABAPENTIN. [Concomitant]
     Active Substance: GABAPENTIN
  18. PROLIA [Concomitant]
     Active Substance: DENOSUMAB
  19. VITAMIN D3 [Concomitant]
     Active Substance: CHOLECALCIFEROL
  20. DOCUSATE SODIUM. [Concomitant]
     Active Substance: DOCUSATE SODIUM
  21. VITAMIN B12 [Concomitant]
     Active Substance: CYANOCOBALAMIN
  22. MUCINEX [Concomitant]
     Active Substance: GUAIFENESIN
  23. ELIQUIS [Concomitant]
     Active Substance: APIXABAN
  24. SODIUM CHLORIDE. [Concomitant]
     Active Substance: SODIUM CHLORIDE
  25. EPINEPHRINE. [Concomitant]
     Active Substance: EPINEPHRINE
  26. PROAIR HFA [Concomitant]
     Active Substance: ALBUTEROL SULFATE
  27. LOSARTAN. [Concomitant]
     Active Substance: LOSARTAN
  28. NYSTATIN AND TRIAMCINOLONE [Concomitant]
     Active Substance: NYSTATIN\TRIAMCINOLONE ACETONIDE
  29. CARVEDILOL. [Concomitant]
     Active Substance: CARVEDILOL
  30. ADVAIR HFA [Concomitant]
     Active Substance: FLUTICASONE PROPIONATE\SALMETEROL XINAFOATE

REACTIONS (1)
  - Respiratory distress [Unknown]
